FAERS Safety Report 5150914-2 (Version None)
Quarter: 2006Q4

REPORT INFORMATION
  Report Type: 
  Country: None (occurrence: None)
  Receive Date: 20061114
  Receipt Date: 20061108
  Transmission Date: 20070319
  Serious: Yes (Hospitalization)
  Sender: FDA-Public Use
  Company Number: DE-BOEHRINGER INGELHEIM PHARMACEUTICALS, INC.-2006-DE-05875DE

PATIENT
  Age: 42 Year

DRUGS (3)
  1. MICARDIS [Suspect]
     Route: 048
  2. DICLOFENAC SODIUM [Suspect]
     Route: 048
  3. IBU [Suspect]
     Route: 048

REACTIONS (2)
  - DRUG ABUSER [None]
  - SUICIDE ATTEMPT [None]
